FAERS Safety Report 23501185 (Version 1)
Quarter: 2024Q1

REPORT INFORMATION
  Report Type: Spontaneous
  Country: US (occurrence: US)
  Receive Date: 20240208
  Receipt Date: 20240208
  Transmission Date: 20240409
  Serious: No
  Sender: FDA-Public Use
  Company Number: US-PERRIGO-23US003692

PATIENT
  Age: 10 Month
  Sex: Female
  Weight: 9.524 kg

DRUGS (1)
  1. CETIRIZINE HYDROCHLORIDE [Suspect]
     Active Substance: CETIRIZINE HYDROCHLORIDE
     Indication: Accidental exposure to product by child
     Dosage: UNKNOWN, SINGLE
     Route: 048
     Dates: start: 20230320, end: 20230320

REACTIONS (2)
  - Accidental exposure to product by child [Unknown]
  - Expired product administered [Unknown]

NARRATIVE: CASE EVENT DATE: 20230320
